FAERS Safety Report 7841381-6 (Version None)
Quarter: 2011Q4

REPORT INFORMATION
  Report Type: 
  Country: None (occurrence: None)
  Receive Date: 20111025
  Receipt Date: 20111012
  Transmission Date: 20120403
  Serious: Yes (Death)
  Sender: FDA-Public Use
  Company Number: JP-AMGEN-JPNSP2011054710

PATIENT
  Age: 79 Year

DRUGS (3)
  1. PREDNISOLONE [Concomitant]
     Dosage: 5 MG/KG, UNK
     Route: 048
     Dates: start: 20110729, end: 20110911
  2. ROMIPLATE [Suspect]
     Indication: IDIOPATHIC THROMBOCYTOPENIC PURPURA
     Dosage: 50 MUG, UNK
     Route: 058
     Dates: start: 20110826, end: 20110902
  3. SOLU-CORTEF [Concomitant]
     Route: 041
     Dates: start: 20110729, end: 20110911

REACTIONS (1)
  - ASTHMA [None]
